FAERS Safety Report 21785311 (Version 1)
Quarter: 2022Q4

REPORT INFORMATION
  Report Type: Spontaneous
  Country: GB (occurrence: GB)
  Receive Date: 20221227
  Receipt Date: 20221227
  Transmission Date: 20230113
  Serious: Yes (Other)
  Sender: FDA-Public Use
  Company Number: None

PATIENT
  Age: 80 Year
  Sex: Female
  Weight: 68 kg

DRUGS (8)
  1. INDAPAMIDE [Suspect]
     Active Substance: INDAPAMIDE
     Indication: Ill-defined disorder
     Dosage: UNK
     Route: 065
     Dates: start: 20221219
  2. ASPIRIN [Concomitant]
     Active Substance: ASPIRIN
     Indication: Ill-defined disorder
     Dosage: UNK (TAKE ONE DAILY)
     Route: 065
     Dates: start: 20220608
  3. ATENOLOL [Concomitant]
     Active Substance: ATENOLOL
     Indication: Ill-defined disorder
     Dosage: UNK (TAKE ONE EACH MORNING)
     Route: 065
     Dates: start: 20221116
  4. DICLOFENAC DIETHYLAMINE [Concomitant]
     Active Substance: DICLOFENAC DIETHYLAMINE
     Indication: Ill-defined disorder
     Dosage: UNK (APPLY 3 TIMES/DAY)
     Route: 065
     Dates: start: 20220608
  5. FAMOTIDINE [Concomitant]
     Active Substance: FAMOTIDINE
     Indication: Ill-defined disorder
     Dosage: UNK (TAKE ONE TWICE DAILY)
     Route: 065
     Dates: start: 20221214
  6. POTASSIUM BICARBONATE\SODIUM ALGINATE [Concomitant]
     Active Substance: POTASSIUM BICARBONATE\SODIUM ALGINATE
     Indication: Ill-defined disorder
     Dosage: UNK (5ML - 10ML UP TO 4 TIMES/DAY)
     Route: 065
     Dates: start: 20220608, end: 20221214
  7. HYALURONATE SODIUM [Concomitant]
     Active Substance: HYALURONATE SODIUM
     Indication: Ill-defined disorder
     Dosage: UNK (ONE DROP TO EACH EYE AS REQUIRED)
     Route: 065
     Dates: start: 20220608
  8. OMEPRAZOLE [Concomitant]
     Active Substance: OMEPRAZOLE
     Indication: Ill-defined disorder
     Dosage: UNK (TAKE TWICE DAILY 30 MINUTES BEFORE FOOD)
     Route: 065
     Dates: start: 20221116

REACTIONS (1)
  - Neuropathy peripheral [Recovering/Resolving]

NARRATIVE: CASE EVENT DATE: 20221219
